FAERS Safety Report 10573322 (Version 1)
Quarter: 2014Q4

REPORT INFORMATION
  Report Type: Spontaneous
  Country: None (occurrence: None)
  Receive Date: 20141030
  Receipt Date: 20141030
  Transmission Date: 20150529
  Serious: Yes (Other)
  Sender: FDA-Public Use
  Company Number: PHEH2014US010308

PATIENT
  Age: 10 Year
  Sex: Male

DRUGS (6)
  1. TYLENOL [Concomitant]
     Active Substance: ACETAMINOPHEN
  2. DIASTAT (ATROPA BELLADONNA TINCTURE, CHLOROFORM AND MORPHINE TINCTURE, KAOLIN, PECTIN, PHTHALYSULFATHIAZOLE, STREPTOMYCIN) [Concomitant]
  3. XOPENEX (LEVOSALBUTAMOL HYDROCHLORIDE) [Concomitant]
  4. TRILEPTAL [Suspect]
     Active Substance: OXCARBAZEPINE
  5. PULMICORT TURBUHALER [Concomitant]
     Active Substance: BUDESONIDE
  6. PREVACID [Concomitant]
     Active Substance: LANSOPRAZOLE

REACTIONS (4)
  - Seasonal allergy [None]
  - Asthma [None]
  - Cough [None]
  - Erythema [None]
